FAERS Safety Report 4832570-3 (Version None)
Quarter: 2005Q4

REPORT INFORMATION
  Report Type: 
  Country: None (occurrence: None)
  Receive Date: 20051121
  Receipt Date: 20051111
  Transmission Date: 20060501
  Serious: Yes (Other)
  Sender: FDA-Public Use
  Company Number: 2005AC01824

PATIENT
  Sex: Male

DRUGS (1)
  1. GEFITINIB [Suspect]
     Indication: NON-SMALL CELL LUNG CANCER

REACTIONS (6)
  - AMNESIA [None]
  - BLINDNESS [None]
  - CONVULSION [None]
  - DEMYELINATION [None]
  - DYSPNOEA [None]
  - DYSPNOEA EXERTIONAL [None]
